FAERS Safety Report 14139011 (Version 2)
Quarter: 2018Q1

REPORT INFORMATION
  Report Type: Spontaneous
  Country: US (occurrence: US)
  Receive Date: 20171027
  Receipt Date: 20180125
  Transmission Date: 20180508
  Serious: No
  Sender: FDA-Public Use
  Company Number: US-AMGEN-USASP2017156228

PATIENT
  Age: 63 Year
  Sex: Female
  Weight: 68.93 kg

DRUGS (5)
  1. METFORMIN HCL [Concomitant]
     Active Substance: METFORMIN HYDROCHLORIDE
     Indication: DIABETES MELLITUS
     Dosage: 1000 MG, UNK
     Route: 048
  2. OMEPRAZOLE. [Concomitant]
     Active Substance: OMEPRAZOLE
     Dosage: 40 MG, UNK
     Route: 048
  3. ASPIRIN. [Concomitant]
     Active Substance: ASPIRIN
     Dosage: 81 MG, QD
     Route: 048
  4. REPATHA [Suspect]
     Active Substance: EVOLOCUMAB
     Indication: PRODUCT USED FOR UNKNOWN INDICATION
     Dosage: 140 MG, Q2WK
     Route: 065
     Dates: start: 20170928
  5. TRESIBA [Concomitant]
     Active Substance: INSULIN DEGLUDEC
     Indication: DIABETES MELLITUS
     Dosage: UNK, 100 UNIT/ML, SOLUTION PEN-INJ
     Route: 058

REACTIONS (12)
  - Pharyngeal oedema [Unknown]
  - Electrocardiogram ST segment abnormal [Unknown]
  - Erythema [Unknown]
  - Injection site vesicles [Unknown]
  - Dyspnoea [Unknown]
  - Chest pain [Unknown]
  - Rash [Unknown]
  - Pruritus [Unknown]
  - Tachycardia [Unknown]
  - Diarrhoea [Unknown]
  - Influenza like illness [Unknown]
  - Injection site rash [Recovered/Resolved]

NARRATIVE: CASE EVENT DATE: 2017
